FAERS Safety Report 5008447-X (Version None)
Quarter: 2006Q2

REPORT INFORMATION
  Report Type: 
  Country: None (occurrence: None)
  Receive Date: 20060523
  Receipt Date: 20060410
  Transmission Date: 20061013
  Serious: Yes (Life-Threatening, Hospitalization)
  Sender: FDA-Public Use
  Company Number: PHBS2006JP05475

PATIENT
  Age: 43 Year
  Sex: Male
  Weight: 85 kg

DRUGS (3)
  1. ALLOPURINOL [Concomitant]
     Indication: HYPERURICAEMIA
     Dosage: 200 MG, UNK
     Route: 048
     Dates: start: 20060327, end: 20060408
  2. URSO [Concomitant]
     Indication: HEPATIC FUNCTION ABNORMAL
     Dosage: 300 MG, UNK
     Route: 048
     Dates: start: 20060327, end: 20060408
  3. DIOVAN [Suspect]
     Indication: RENAL IMPAIRMENT
     Dosage: 40 MG, QD
     Route: 048
     Dates: start: 20060327, end: 20060408

REACTIONS (13)
  - BLOOD CREATININE INCREASED [None]
  - BLOOD UREA INCREASED [None]
  - CYANOSIS [None]
  - DIZZINESS [None]
  - HYPOTENSION [None]
  - MALAISE [None]
  - NASOPHARYNGITIS [None]
  - NAUSEA [None]
  - RENAL FAILURE ACUTE [None]
  - SHOCK [None]
  - SOMNOLENCE [None]
  - URINARY RETENTION [None]
  - VOMITING [None]
